FAERS Safety Report 7483403-0 (Version None)
Quarter: 2011Q2

REPORT INFORMATION
  Report Type: 
  Country: None (occurrence: None)
  Receive Date: 20110517
  Receipt Date: 20110505
  Transmission Date: 20111010
  Serious: Yes (Other)
  Sender: FDA-Public Use
  Company Number: AU-JNJFOC-20110311568

PATIENT
  Sex: Female

DRUGS (4)
  1. STELARA [Suspect]
     Route: 058
     Dates: start: 20110223
  2. METHOTREXATE [Concomitant]
     Indication: RHEUMATOID ARTHRITIS
  3. STELARA [Suspect]
     Route: 058
     Dates: start: 20101201
  4. STELARA [Suspect]
     Indication: PSORIASIS
     Route: 058
     Dates: start: 20101101

REACTIONS (4)
  - BREAST DISCHARGE [None]
  - FATIGUE [None]
  - DRUG INEFFECTIVE [None]
  - WEIGHT DECREASED [None]
